FAERS Safety Report 12385323 (Version 2)
Quarter: 2016Q2

REPORT INFORMATION
  Report Type: Spontaneous
  Country: US (occurrence: US)
  Receive Date: 20160519
  Receipt Date: 20160525
  Transmission Date: 20160815
  Serious: Yes (Other)
  Sender: FDA-Public Use
  Company Number: US-DRREDDYS-DRL/USA/16/0079607

PATIENT
  Age: 51 Year
  Sex: Female

DRUGS (2)
  1. IBUPROFEN. [Suspect]
     Active Substance: IBUPROFEN
     Indication: PAIN
     Route: 065
  2. AMBISOME [Suspect]
     Active Substance: AMPHOTERICIN B
     Indication: MENINGITIS CRYPTOCOCCAL
     Route: 065

REACTIONS (3)
  - Blood creatinine increased [Unknown]
  - Headache [Unknown]
  - Nephropathy toxic [Unknown]
